FAERS Safety Report 10254275 (Version 2)
Quarter: 2014Q2

REPORT INFORMATION
  Report Type: Spontaneous
  Country: CA (occurrence: CA)
  Receive Date: 20140624
  Receipt Date: 20140624
  Transmission Date: 20141212
  Serious: Yes (Hospitalization)
  Sender: FDA-Public Use
  Company Number: CA-AMGEN-CANSP2013071183

PATIENT
  Age: 67 Year
  Sex: Female

DRUGS (2)
  1. PROLIA [Suspect]
     Indication: OSTEOPOROSIS POSTMENOPAUSAL
     Dosage: 60 MG, Q6MO
     Route: 065
     Dates: start: 20130426
  2. ATASOL                             /00020001/ [Concomitant]

REACTIONS (7)
  - Dyspnoea [Not Recovered/Not Resolved]
  - Toothache [Unknown]
  - Bacterial infection [Unknown]
  - Burning sensation [Not Recovered/Not Resolved]
  - Peripheral swelling [Not Recovered/Not Resolved]
  - Night sweats [Not Recovered/Not Resolved]
  - Back pain [Not Recovered/Not Resolved]
